FAERS Safety Report 16339965 (Version 1)
Quarter: 2019Q2

REPORT INFORMATION
  Report Type: Spontaneous
  Country: CA (occurrence: CA)
  Receive Date: 20190521
  Receipt Date: 20190521
  Transmission Date: 20190711
  Serious: Yes (Death)
  Sender: FDA-Public Use
  Company Number: CA-TEVA-2019-CA-1050333

PATIENT
  Age: 25 Year
  Sex: Male
  Weight: 85 kg

DRUGS (3)
  1. CARBAMAZEPINE CR [Concomitant]
  2. DIVALPROEX SODIUM. [Suspect]
     Active Substance: DIVALPROEX SODIUM
     Indication: SEIZURE
     Dosage: 500 MILLIGRAM DAILY;
     Route: 048
  3. DIVALPROEX SODIUM. [Suspect]
     Active Substance: DIVALPROEX SODIUM
     Dosage: 750 MILLIGRAM DAILY;
     Route: 048

REACTIONS (21)
  - Acute respiratory distress syndrome [Fatal]
  - Brain oedema [Fatal]
  - Cerebral hypoperfusion [Fatal]
  - Resuscitation [Fatal]
  - Aspiration [Fatal]
  - Haemodialysis [Fatal]
  - Hyponatraemia [Fatal]
  - Seizure [Fatal]
  - Sepsis [Fatal]
  - Clostridium difficile colitis [Fatal]
  - Liver function test increased [Fatal]
  - Brain herniation [Fatal]
  - Ascites [Fatal]
  - Hypoglycaemia [Fatal]
  - Respiratory tract infection [Fatal]
  - Acute kidney injury [Fatal]
  - Depressed level of consciousness [Fatal]
  - Disseminated intravascular coagulation [Fatal]
  - Generalised oedema [Fatal]
  - Hyperammonaemic encephalopathy [Fatal]
  - Pancreatitis [Fatal]
